FAERS Safety Report 11717969 (Version 1)
Quarter: 2015Q4

REPORT INFORMATION
  Report Type: Spontaneous
  Country: US (occurrence: None)
  Receive Date: 20151109
  Receipt Date: 20151109
  Transmission Date: 20160304
  Serious: Yes (Other)
  Sender: FDA-Public Use
  Company Number: None

PATIENT
  Age: 32 Year
  Sex: Female
  Weight: 108.86 kg

DRUGS (6)
  1. OMEGA FATTY ACID [Concomitant]
  2. ASPIRIN. [Concomitant]
     Active Substance: ASPIRIN
  3. SUMATRIPTAN. [Suspect]
     Active Substance: SUMATRIPTAN
     Indication: MIGRAINE
     Dosage: 1 AT ONSET OF HEADACHE
     Route: 048
     Dates: start: 20151105, end: 20151105
  4. DULOXETINE. [Concomitant]
     Active Substance: DULOXETINE
  5. NIACIN. [Concomitant]
     Active Substance: NIACIN
  6. METFORMIN [Concomitant]
     Active Substance: METFORMIN HYDROCHLORIDE

REACTIONS (6)
  - Blood pressure increased [None]
  - Chest pain [None]
  - Ear pain [None]
  - Oropharyngeal pain [None]
  - Neck pain [None]
  - Pain in extremity [None]

NARRATIVE: CASE EVENT DATE: 20151105
